FAERS Safety Report 21128709 (Version 1)
Quarter: 2022Q3

REPORT INFORMATION
  Report Type: Spontaneous
  Country: CA (occurrence: None)
  Receive Date: 20220725
  Receipt Date: 20220725
  Transmission Date: 20221027
  Serious: Yes (Hospitalization)
  Sender: FDA-Public Use
  Company Number: CA-ROCHE-3144169

PATIENT
  Sex: Female
  Weight: 59 kg

DRUGS (7)
  1. RITUXIMAB [Suspect]
     Active Substance: RITUXIMAB
     Indication: Rheumatoid arthritis
     Route: 042
  2. TYLENOL [Concomitant]
     Active Substance: ACETAMINOPHEN
  3. PROLIA [Concomitant]
     Active Substance: DENOSUMAB
  4. VOLTAREN [Concomitant]
     Active Substance: DICLOFENAC SODIUM
  5. SYNTHROID [Concomitant]
     Active Substance: LEVOTHYROXINE SODIUM
  6. PREDNISONE [Concomitant]
     Active Substance: PREDNISONE
  7. HYDROXYCHLOROQUINE SULFATE [Concomitant]
     Active Substance: HYDROXYCHLOROQUINE SULFATE

REACTIONS (3)
  - Sjogren^s syndrome [Not Recovered/Not Resolved]
  - Pancreatic cyst [Not Recovered/Not Resolved]
  - Constipation [Not Recovered/Not Resolved]
